FAERS Safety Report 9179654 (Version 1)
Quarter: 2012Q4

REPORT INFORMATION
  Report Type: 
  Country: JP (occurrence: JP)
  Receive Date: 20121029
  Receipt Date: 20121029
  Transmission Date: 20130627
  Serious: Yes (Other)
  Sender: FDA-Public Use
  Company Number: JP-GLAXOSMITHKLINE-B0840616A

PATIENT
  Weight: 2.06 kg

DRUGS (2)
  1. ZOVIRAX [Suspect]
     Indication: VARICELLA
     Route: 064
  2. ZOVIRAX [Suspect]
     Route: 042

REACTIONS (4)
  - Foetal heart rate deceleration [Recovering/Resolving]
  - Foetal heart rate decreased [Recovering/Resolving]
  - Foetal disorder [Recovering/Resolving]
  - Foetal exposure during pregnancy [Unknown]
